FAERS Safety Report 25081492 (Version 2)
Quarter: 2025Q2

REPORT INFORMATION
  Report Type: Report from Study
  Country: US (occurrence: US)
  Receive Date: 20250316
  Receipt Date: 20250519
  Transmission Date: 20250717
  Serious: Yes (Hospitalization)
  Sender: NOVARTIS
  Company Number: US-002147023-NVSC2025US041833

PATIENT
  Sex: Female

DRUGS (1)
  1. KESIMPTA [Suspect]
     Active Substance: OFATUMUMAB
     Indication: Relapsing multiple sclerosis
     Dosage: 20 MG, QW
     Route: 058

REACTIONS (5)
  - Colitis [Not Recovered/Not Resolved]
  - Muscular weakness [Recovering/Resolving]
  - Vision blurred [Recovering/Resolving]
  - Tongue biting [Recovering/Resolving]
  - Pain [Unknown]
